FAERS Safety Report 5395018-9 (Version None)
Quarter: 2007Q3

REPORT INFORMATION
  Report Type: 
  Country: None (occurrence: None)
  Receive Date: 20070724
  Receipt Date: 20070719
  Transmission Date: 20080115
  Serious: Yes (Death)
  Sender: FDA-Public Use
  Company Number: US-JNJFOC-20070606686

PATIENT
  Age: 57 Year
  Sex: Female

DRUGS (6)
  1. LEVAQUIN [Suspect]
     Indication: PNEUMONIA
     Route: 048
  2. XANAX [Concomitant]
     Indication: DEPRESSION
     Route: 065
  3. RISPERDAL [Concomitant]
     Route: 065
  4. NEURONTIN [Concomitant]
     Route: 065
  5. COUGH SYRUP [Concomitant]
     Route: 065
  6. HYCODAN [Concomitant]
     Route: 065

REACTIONS (3)
  - CARDIAC ARREST [None]
  - DEPRESSION [None]
  - PNEUMONIA [None]
